FAERS Safety Report 4578967-0 (Version None)
Quarter: 2005Q1

REPORT INFORMATION
  Report Type: 
  Country: None (occurrence: None)
  Receive Date: 20050121
  Receipt Date: 20040802
  Transmission Date: 20050727
  Serious: Yes (Hospitalization)
  Sender: FDA-Public Use
  Company Number: HQWYE833604AUG04

PATIENT
  Age: 21 Year
  Sex: Female
  Weight: 52.21 kg

DRUGS (1)
  1. NORPLANT SYSTEM [Suspect]
     Indication: CONTRACEPTION
     Dosage: 6 CAPSULES, SUBCUTANEOUS
     Route: 058
     Dates: start: 19990501

REACTIONS (6)
  - AMENORRHOEA [None]
  - MENOMETRORRHAGIA [None]
  - MIGRAINE [None]
  - MOOD SWINGS [None]
  - VISUAL DISTURBANCE [None]
  - WEIGHT DECREASED [None]
